FAERS Safety Report 6382887-9 (Version None)
Quarter: 2009Q3

REPORT INFORMATION
  Report Type: 
  Country: None (occurrence: None)
  Receive Date: 20090930
  Receipt Date: 20090923
  Transmission Date: 20100115
  Serious: Yes (Hospitalization)
  Sender: FDA-Public Use
  Company Number: ES-AMGEN-UK358898

PATIENT
  Sex: Male

DRUGS (17)
  1. PANITUMUMAB [Suspect]
     Indication: SQUAMOUS CELL CARCINOMA
     Route: 042
     Dates: start: 20090708
  2. PANITUMUMAB - STUDY PROCEDURE [Suspect]
     Indication: SQUAMOUS CELL CARCINOMA
  3. BISOPROLOL FUMARATE [Concomitant]
     Route: 065
  4. PARACETAMOL [Concomitant]
     Route: 065
  5. MYCOSTATIN [Concomitant]
     Route: 048
  6. OMEPRAZOLE [Concomitant]
     Route: 065
     Dates: start: 20090804, end: 20090805
  7. FLUCONAZOLE [Concomitant]
     Route: 042
     Dates: start: 20090804
  8. PIPERACILLIN AND TAZOBACTAM [Concomitant]
     Route: 042
     Dates: start: 20090804, end: 20090810
  9. DEXAMETHASONE 4MG TAB [Concomitant]
     Route: 065
     Dates: start: 20090805, end: 20090808
  10. DEXCHLORPHENIRAMINE [Concomitant]
     Route: 065
     Dates: start: 20090805
  11. PANTOPRAZOLE SODIUM [Concomitant]
     Route: 065
     Dates: start: 20090805, end: 20090808
  12. ENOXAPARIN [Concomitant]
     Route: 058
     Dates: start: 20090805, end: 20090810
  13. LIDOCAINE [Concomitant]
     Route: 048
     Dates: start: 20090805
  14. METAMIZOLE [Concomitant]
     Route: 042
     Dates: start: 20090805
  15. CALCIUM [Concomitant]
     Route: 065
     Dates: start: 20090812
  16. SULFAMETHOXAZOLE AND TRIMETHOPRIM [Concomitant]
     Route: 065
     Dates: start: 20090812, end: 20090822
  17. VALACYCLOVIR HCL [Concomitant]
     Route: 065
     Dates: start: 20090812, end: 20090822

REACTIONS (3)
  - INFLAMMATION [None]
  - MUCOSAL INFLAMMATION [None]
  - SKIN INFECTION [None]
